FAERS Safety Report 16317638 (Version 1)
Quarter: 2019Q2

REPORT INFORMATION
  Report Type: Spontaneous
  Country: NL (occurrence: NL)
  Receive Date: 20190516
  Receipt Date: 20190516
  Transmission Date: 20190711
  Serious: Yes (Hospitalization)
  Sender: FDA-Public Use
  Company Number: NL-AUROBINDO-AUR-APL-2019-025455

PATIENT

DRUGS (1)
  1. AMOXICILLIN+CLAVULANIC ACID ACTAVIS 250-62.5MG/5 ML [Suspect]
     Active Substance: AMOXICILLIN\CLAVULANIC ACID
     Indication: TONSILLITIS
     Dosage: 1 DOSAGE FORM, 3 TIMES A DAY,3XP.DAG
     Route: 048
     Dates: start: 20180530, end: 20180601

REACTIONS (5)
  - Rash erythematous [Unknown]
  - Oedema [Unknown]
  - Pyrexia [Unknown]
  - Pruritus [Unknown]
  - Nail discolouration [Unknown]

NARRATIVE: CASE EVENT DATE: 20180601
